FAERS Safety Report 12719349 (Version 1)
Quarter: 2016Q3

REPORT INFORMATION
  Report Type: Spontaneous
  Country: US (occurrence: US)
  Receive Date: 20160907
  Receipt Date: 20160907
  Transmission Date: 20161109
  Serious: Yes (Hospitalization)
  Sender: FDA-Public Use
  Company Number: US-TEVA-689194USA

PATIENT
  Age: 74 Year
  Sex: Male

DRUGS (1)
  1. AZILECT [Suspect]
     Active Substance: RASAGILINE MESYLATE
     Route: 065

REACTIONS (3)
  - Spinal disorder [Unknown]
  - Hallucination [Unknown]
  - Drug interaction [Unknown]

NARRATIVE: CASE EVENT DATE: 201608
